FAERS Safety Report 9837112 (Version 1)
Quarter: 2014Q1

REPORT INFORMATION
  Report Type: Spontaneous
  Country: US (occurrence: US)
  Receive Date: 20140123
  Receipt Date: 20140123
  Transmission Date: 20141002
  Serious: Yes (Other)
  Sender: FDA-Public Use
  Company Number: US-GE HEALTHCARE MEDICAL DIAGNOSTICS-OSCN-PR-1312S-0163

PATIENT
  Sex: Male

DRUGS (5)
  1. OMNISCAN [Suspect]
     Indication: LIVER DISORDER
     Route: 042
     Dates: start: 20040713, end: 20040713
  2. OMNISCAN [Suspect]
     Indication: NECK PAIN
     Route: 042
     Dates: start: 20041015, end: 20041015
  3. PROHANCE [Suspect]
     Indication: RENAL CYST
     Route: 042
     Dates: start: 20030703, end: 20030703
  4. MAGNEVIST [Suspect]
     Indication: DECUBITUS ULCER
     Route: 042
     Dates: start: 20050414, end: 20050414
  5. MAGNEVIST [Suspect]
     Indication: OSTEOMYELITIS

REACTIONS (1)
  - Nephrogenic systemic fibrosis [Not Recovered/Not Resolved]
